FAERS Safety Report 9902729 (Version 2)
Quarter: 2014Q2

REPORT INFORMATION
  Report Type: Report from Study
  Country: BR (occurrence: BR)
  Receive Date: 20140217
  Receipt Date: 20140416
  Transmission Date: 20141212
  Serious: Yes (Other)
  Sender: FDA-Public Use
  Company Number: BR-ABBVIE-14P-020-1200503-00

PATIENT
  Sex: Female
  Weight: 86 kg

DRUGS (10)
  1. HUMIRA [Suspect]
     Indication: RHEUMATOID ARTHRITIS
     Route: 058
     Dates: start: 201010, end: 201310
  2. GOLIMUMAB [Concomitant]
     Indication: RHEUMATOID ARTHRITIS
     Dosage: ONCE MONTHLY
     Route: 050
     Dates: start: 201310
  3. UNKNOWN ANTI-INFLAMMATORY [Concomitant]
     Indication: ANTIINFLAMMATORY THERAPY
     Dosage: ONCE DAILY
     Route: 048
     Dates: start: 2006
  4. CORTISONE [Concomitant]
     Indication: PAIN
     Dosage: ONCE DAILY, AS NEEDED
     Route: 048
     Dates: start: 2010
  5. ENALAPRIL [Concomitant]
     Indication: BLOOD PRESSURE ABNORMAL
     Route: 048
     Dates: start: 2006
  6. TIMOLOL MALEATE [Concomitant]
     Indication: ABNORMAL SENSATION IN EYE
     Dosage: EYE DROP
  7. TIMOLOL MALEATE [Concomitant]
     Indication: PROPHYLAXIS
  8. TIMOLOL MALEATE [Concomitant]
     Indication: GLAUCOMA
  9. SODIUM HYALURONATE (STER) [Concomitant]
     Indication: EYE IRRITATION
     Dosage: EYE DROP
  10. CALCIUM [Concomitant]
     Indication: PRODUCT USED FOR UNKNOWN INDICATION

REACTIONS (1)
  - Scleritis [Recovered/Resolved]
